FAERS Safety Report 7197226-3 (Version None)
Quarter: 2010Q4

REPORT INFORMATION
  Report Type: 
  Country: None (occurrence: None)
  Receive Date: 20101224
  Receipt Date: 20101217
  Transmission Date: 20110411
  Serious: Yes (Hospitalization)
  Sender: FDA-Public Use
  Company Number: FR-BRISTOL-MYERS SQUIBB COMPANY-15146624

PATIENT
  Age: 58 Year
  Sex: Male

DRUGS (9)
  1. HYDREA [Suspect]
     Indication: ESSENTIAL THROMBOCYTHAEMIA
     Dates: start: 20100503, end: 20100520
  2. ALLOPURINOL [Suspect]
     Indication: ESSENTIAL THROMBOCYTHAEMIA
     Dosage: TAB
     Dates: start: 20100503, end: 20100520
  3. CLOPIDOGREL BISULFATE [Concomitant]
  4. TAHOR [Concomitant]
  5. PERINDOPRIL ERBUMINE [Concomitant]
  6. NEXIUM [Concomitant]
  7. PIASCLEDINE [Concomitant]
     Dosage: CAPS
  8. STILNOX [Concomitant]
  9. XANAX [Concomitant]

REACTIONS (10)
  - BLOOD LACTATE DEHYDROGENASE INCREASED [None]
  - BLOOD TRIGLYCERIDES ABNORMAL [None]
  - CELL DEATH [None]
  - CHOLESTASIS [None]
  - HISTIOCYTOSIS HAEMATOPHAGIC [None]
  - HYPOKALAEMIA [None]
  - HYPONATRAEMIA [None]
  - PLATELET COUNT DECREASED [None]
  - PYREXIA [None]
  - SERUM FERRITIN INCREASED [None]
